FAERS Safety Report 15560695 (Version 1)
Quarter: 2018Q4

REPORT INFORMATION
  Report Type: Spontaneous
  Country: US (occurrence: US)
  Receive Date: 20181024
  Receipt Date: 20181024
  Transmission Date: 20190205
  Serious: Yes (Hospitalization)
  Sender: FDA-Public Use
  Company Number: None

PATIENT
  Age: 37 Year
  Sex: Male

DRUGS (2)
  1. NITROGLYCERIN. [Suspect]
     Active Substance: NITROGLYCERIN
     Indication: CHEST PAIN
     Dosage: ?          OTHER DOSE:1 TAB;?
     Route: 060
     Dates: start: 20180820, end: 20180820
  2. NITROGLYCERIN. [Suspect]
     Active Substance: NITROGLYCERIN
     Indication: CHEST DISCOMFORT
     Dosage: ?          OTHER DOSE:1 TAB;?
     Route: 060
     Dates: start: 20180820, end: 20180820

REACTIONS (1)
  - Hypotension [None]

NARRATIVE: CASE EVENT DATE: 20180820
